FAERS Safety Report 7588777-8 (Version None)
Quarter: 2011Q3

REPORT INFORMATION
  Report Type: 
  Country: None (occurrence: None)
  Receive Date: 20110705
  Receipt Date: 20110629
  Transmission Date: 20111222
  Serious: Yes (Life-Threatening, Hospitalization, Other)
  Sender: FDA-Public Use
  Company Number: JP-JNJFOC-20110500110

PATIENT
  Sex: Female
  Weight: 49 kg

DRUGS (7)
  1. MUCOSTA [Concomitant]
     Route: 048
  2. DEPAS [Concomitant]
     Route: 048
  3. DOXIL [Suspect]
     Route: 042
     Dates: start: 20110414
  4. DOXIL [Suspect]
     Indication: OVARIAN CANCER RECURRENT
     Dosage: PATIENT WAS GIVEN 3 CYCLES
     Route: 042
  5. DOXIL [Suspect]
     Dosage: PATIENT WAS GIVEN 3 CYCLES
     Route: 042
     Dates: end: 20110318
  6. MAGNESIUM OXIDE [Concomitant]
  7. DOXIL [Suspect]
     Dosage: PATIENT WAS GIVEN 3 CYCLES
     Route: 042
     Dates: start: 20110114

REACTIONS (2)
  - WHITE BLOOD CELL COUNT DECREASED [None]
  - INTERSTITIAL LUNG DISEASE [None]
